FAERS Safety Report 9477851 (Version 1)
Quarter: 2013Q3

REPORT INFORMATION
  Report Type: Spontaneous
  Country: US (occurrence: None)
  Receive Date: 20130826
  Receipt Date: 20130826
  Transmission Date: 20140515
  Serious: Yes (Other)
  Sender: FDA-Public Use
  Company Number: None

PATIENT
  Age: 51 Year
  Sex: Female
  Weight: 59.99 kg

DRUGS (2)
  1. ZOLOFT [Suspect]
     Indication: GENERALISED ANXIETY DISORDER
     Route: 048
     Dates: start: 2001
  2. VALIUM [Concomitant]

REACTIONS (3)
  - Hallucination, auditory [None]
  - Product substitution issue [None]
  - Memory impairment [None]
